FAERS Safety Report 5350758-2 (Version None)
Quarter: 2007Q2

REPORT INFORMATION
  Report Type: 
  Country: None (occurrence: None)
  Receive Date: 20070608
  Receipt Date: 20070604
  Transmission Date: 20071010
  Serious: Yes (Death)
  Sender: FDA-Public Use
  Company Number: US-SANOFI-SYNTHELABO-A03200703436

PATIENT
  Sex: Female

DRUGS (9)
  1. COREG [Concomitant]
     Route: 048
  2. ASPIRIN [Concomitant]
     Route: 048
  3. COUMADIN [Suspect]
     Indication: DEEP VEIN THROMBOSIS
     Route: 048
     Dates: start: 20070420
  4. COUMADIN [Suspect]
     Dosage: UNK
     Route: 048
     Dates: start: 20050401, end: 20050702
  5. PLAVIX [Suspect]
     Indication: MYOCARDIAL INFARCTION
     Route: 048
     Dates: start: 20050702
  6. PLAVIX [Suspect]
     Indication: CORONARY ARTERIAL STENT INSERTION
     Route: 048
     Dates: start: 20050702
  7. VALCADE [Concomitant]
     Dosage: UNK
     Route: 042
     Dates: start: 20070417, end: 20070417
  8. DECADRON [Concomitant]
     Dosage: UNK
     Route: 048
     Dates: start: 20030101, end: 20050401
  9. THALIDOMIDE [Concomitant]
     Dosage: UNK
     Route: 048
     Dates: start: 20030101, end: 20050401

REACTIONS (3)
  - FOAMING AT MOUTH [None]
  - LOSS OF CONSCIOUSNESS [None]
  - SUDDEN DEATH [None]
